FAERS Safety Report 17665297 (Version 1)
Quarter: 2020Q2

REPORT INFORMATION
  Report Type: Spontaneous
  Country: US (occurrence: US)
  Receive Date: 20200413
  Receipt Date: 20200413
  Transmission Date: 20200713
  Serious: Yes (Hospitalization)
  Sender: FDA-Public Use
  Company Number: None

PATIENT
  Age: 76 Year
  Sex: Male
  Weight: 62 kg

DRUGS (1)
  1. PREDNISONE (PREDNISONE 10MG TAB) [Suspect]
     Active Substance: PREDNISONE
     Indication: DERMATOMYOSITIS
     Dates: start: 20190916

REACTIONS (3)
  - Condition aggravated [None]
  - Skin fragility [None]
  - Myopathy [None]

NARRATIVE: CASE EVENT DATE: 20200111
